FAERS Safety Report 14103171 (Version 1)
Quarter: 2017Q4

REPORT INFORMATION
  Report Type: Spontaneous
  Country: US (occurrence: US)
  Receive Date: 20171018
  Receipt Date: 20171018
  Transmission Date: 20180321
  Serious: No
  Sender: FDA-Public Use
  Company Number: US-GLAXOSMITHKLINE-US2017159200

PATIENT
  Sex: Female

DRUGS (2)
  1. BREO ELLIPTA [Suspect]
     Active Substance: FLUTICASONE FUROATE\VILANTEROL TRIFENATATE
     Indication: MYCOBACTERIUM AVIUM COMPLEX INFECTION
     Dosage: 1 PUFF(S), QD
  2. ARNUITY ELLIPTA [Suspect]
     Active Substance: FLUTICASONE FUROATE
     Indication: MYCOBACTERIUM AVIUM COMPLEX INFECTION
     Dosage: 1 PUFF(S), QD

REACTIONS (5)
  - Heart rate increased [Unknown]
  - Photophobia [Recovering/Resolving]
  - Product use in unapproved indication [Recovered/Resolved]
  - Nervousness [Recovering/Resolving]
  - Perfume sensitivity [Recovering/Resolving]
